FAERS Safety Report 17844495 (Version 2)
Quarter: 2020Q2

REPORT INFORMATION
  Report Type: Spontaneous
  Country: US (occurrence: US)
  Receive Date: 20200601
  Receipt Date: 20200618
  Transmission Date: 20200714
  Serious: Yes (Other)
  Sender: FDA-Public Use
  Company Number: US-GILEAD-2020-0468824

PATIENT
  Age: 26 Year
  Sex: Female
  Weight: 141.8 kg

DRUGS (13)
  1. COVALESCENT PLASMA [Concomitant]
     Indication: COVID-19
     Dosage: UNK
     Dates: start: 20200519, end: 20200519
  2. POTASSIUM CHLORIDE. [Concomitant]
     Active Substance: POTASSIUM CHLORIDE
  3. SODIUM PHOSPHATE [Concomitant]
     Active Substance: SODIUM PHOSPHATE
  4. REMDESIVIR. [Suspect]
     Active Substance: REMDESIVIR
     Dosage: 100 MG, QD
     Route: 042
     Dates: start: 20200527, end: 20200528
  5. CHLORHEXIDINE [Concomitant]
     Active Substance: CHLORHEXIDINE
  6. TOCILIZUMAB. [Concomitant]
     Active Substance: TOCILIZUMAB
     Dosage: UNK
     Dates: start: 20200517, end: 20200518
  7. ACETAMINOPHEN. [Concomitant]
     Active Substance: ACETAMINOPHEN
     Indication: PYREXIA
  8. HYALURONIDASE [Concomitant]
     Active Substance: HYALURONIDASE
     Indication: EXTRAVASATION
  9. REMDESIVIR. [Suspect]
     Active Substance: REMDESIVIR
     Dosage: 200 MG, ONCE
     Route: 042
     Dates: start: 20200526
  10. OLANZAPINE. [Concomitant]
     Active Substance: OLANZAPINE
  11. REMDESIVIR. [Suspect]
     Active Substance: REMDESIVIR
     Indication: COVID-19
     Dosage: 200 MG, ONCE
     Route: 042
     Dates: start: 20200515, end: 20200515
  12. REMDESIVIR. [Suspect]
     Active Substance: REMDESIVIR
     Dosage: 100 MG, QD
     Route: 042
     Dates: start: 20200516, end: 20200519
  13. PANTOPRAZOLE [Concomitant]
     Active Substance: PANTOPRAZOLE

REACTIONS (1)
  - Liver function test increased [Recovered/Resolved]

NARRATIVE: CASE EVENT DATE: 20200519
